FAERS Safety Report 8429369-8 (Version None)
Quarter: 2012Q2

REPORT INFORMATION
  Report Type: 
  Country: None (occurrence: None)
  Receive Date: 20120612
  Receipt Date: 20120605
  Transmission Date: 20120825
  Serious: Yes (Other)
  Sender: FDA-Public Use
  Company Number: US-PFIZER INC-2012084939

PATIENT
  Sex: Female

DRUGS (2)
  1. PRISTIQ [Suspect]
     Dosage: 50 MG, 1X/DAY
  2. VALIUM [Concomitant]
     Dosage: UNKNOWN

REACTIONS (2)
  - PSYCHIATRIC SYMPTOM [None]
  - IMPAIRED WORK ABILITY [None]
